FAERS Safety Report 9132442 (Version 1)
Quarter: 2013Q1

REPORT INFORMATION
  Report Type: Spontaneous
  Country: US (occurrence: US)
  Receive Date: 20130301
  Receipt Date: 20130301
  Transmission Date: 20140127
  Serious: Yes (Life-Threatening, Hospitalization, Disabling, Other)
  Sender: FDA-Public Use
  Company Number: US-GLAXOSMITHKLINE-A1013440A

PATIENT
  Age: 33 Year
  Sex: Female

DRUGS (5)
  1. LAMICTAL [Suspect]
     Indication: PRODUCT USED FOR UNKNOWN INDICATION
  2. PEPCID [Concomitant]
  3. ZOSYN [Concomitant]
  4. HALDOL [Concomitant]
  5. ATIVAN [Concomitant]

REACTIONS (3)
  - Suicide attempt [Not Recovered/Not Resolved]
  - Poisoning [Not Recovered/Not Resolved]
  - Drug screen positive [Not Recovered/Not Resolved]
